FAERS Safety Report 11368032 (Version 2)
Quarter: 2015Q3

REPORT INFORMATION
  Report Type: Spontaneous
  Country: US (occurrence: None)
  Receive Date: 20150810
  Receipt Date: 20150817
  Transmission Date: 20151125
  Serious: Yes (Other)
  Sender: FDA-Public Use
  Company Number: 150305

PATIENT
  Age: 25 Year
  Sex: Female
  Weight: 68.04 kg

DRUGS (1)
  1. SUPREP BOWEL PREP [Suspect]
     Active Substance: MAGNESIUM SULFATE\POTASSIUM SULFATE\SODIUM SULFATE
     Indication: COLONOSCOPY
     Dosage: 2 X 6 OZ. BOTTLE
     Route: 048
     Dates: start: 20150802, end: 20150802

REACTIONS (4)
  - Haematochezia [None]
  - Nausea [None]
  - Haemorrhoids [None]
  - Haemorrhoidal haemorrhage [None]

NARRATIVE: CASE EVENT DATE: 20150802
